FAERS Safety Report 16611144 (Version 1)
Quarter: 2019Q3

REPORT INFORMATION
  Report Type: Spontaneous
  Country: US (occurrence: US)
  Receive Date: 20190722
  Receipt Date: 20190722
  Transmission Date: 20191004
  Serious: Yes (Life-Threatening)
  Sender: FDA-Public Use
  Company Number: US-AMREGENT-20191529

PATIENT
  Age: 83 Year
  Sex: Male
  Weight: 78 kg

DRUGS (2)
  1. MIRCERA [Suspect]
     Active Substance: METHOXY POLYETHYLENE GLYCOL-EPOETIN BETA
     Dosage: 150 MCG, 1 IN 2 WK
     Route: 040
     Dates: start: 20190505
  2. VENOFER [Suspect]
     Active Substance: IRON SUCROSE
     Dosage: 100 MG
     Route: 040
     Dates: start: 20190523

REACTIONS (3)
  - Cyanosis [Unknown]
  - Unresponsive to stimuli [Unknown]
  - Drug hypersensitivity [Recovering/Resolving]

NARRATIVE: CASE EVENT DATE: 20190608
